FAERS Safety Report 8793813 (Version 4)
Quarter: 2012Q4

REPORT INFORMATION
  Report Type: 
  Country: US (occurrence: US)
  Receive Date: 20120917
  Receipt Date: 20121119
  Transmission Date: 20130627
  Serious: Yes (Hospitalization, Other)
  Sender: FDA-Public Use
  Company Number: US-009507513-1202USA00031

PATIENT

DRUGS (2)
  1. FOSAMAX [Suspect]
     Indication: OSTEOPOROSIS
     Dosage: 10 mg, qd
     Route: 048
     Dates: start: 1995, end: 200110
  2. FOSAMAX [Suspect]
     Dosage: 70 mg, qw
     Route: 048
     Dates: start: 200111, end: 2007

REACTIONS (34)
  - Femur fracture [Unknown]
  - Spinal fusion surgery [Unknown]
  - Eye operation [Unknown]
  - Knee operation [Unknown]
  - Wrist surgery [Unknown]
  - Spinal compression fracture [Unknown]
  - Vertebroplasty [Unknown]
  - Spinal compression fracture [Unknown]
  - Vertebroplasty [Unknown]
  - Spinal laminectomy [Unknown]
  - Rheumatoid arthritis [Unknown]
  - Arthritis [Unknown]
  - Angina pectoris [Unknown]
  - Hysterectomy [Unknown]
  - Anxiety [Unknown]
  - Fall [Unknown]
  - Intervertebral disc degeneration [Unknown]
  - Fall [Unknown]
  - Diplopia [Unknown]
  - Hypercholesterolaemia [Unknown]
  - Fractured sacrum [Unknown]
  - Pubis fracture [Unknown]
  - Thoracic vertebral fracture [Unknown]
  - Spondylolisthesis [Unknown]
  - Kyphosis [Unknown]
  - Osteopenia [Unknown]
  - Back pain [Not Recovered/Not Resolved]
  - Arthralgia [Unknown]
  - Gastrooesophageal reflux disease [Unknown]
  - Oedema peripheral [Unknown]
  - Dizziness [Unknown]
  - Pain in extremity [Unknown]
  - Headache [Unknown]
  - Constipation [Unknown]
